FAERS Safety Report 17641752 (Version 1)
Quarter: 2020Q2

REPORT INFORMATION
  Report Type: Spontaneous
  Country: GB (occurrence: GB)
  Receive Date: 20200407
  Receipt Date: 20200407
  Transmission Date: 20200713
  Serious: Yes (Other)
  Sender: FDA-Public Use
  Company Number: GB-009507513-2004GBR001235

PATIENT
  Sex: Female

DRUGS (2)
  1. BICTEGRAVIR SODIUM (+) EMTRICITABINE (+) TENOFOVIR ALAFENAMIDE FUMARAT [Concomitant]
     Dosage: 200/245 (UNITS NOT PROVIDED)
     Route: 048
  2. ISENTRESS [Suspect]
     Active Substance: RALTEGRAVIR POTASSIUM
     Dosage: 600 MILLIGRAM
     Route: 048

REACTIONS (1)
  - Lower respiratory tract infection [Unknown]
